FAERS Safety Report 20670311 (Version 1)
Quarter: 2022Q2

REPORT INFORMATION
  Report Type: Spontaneous
  Country: US (occurrence: None)
  Receive Date: 20220402
  Receipt Date: 20220402
  Transmission Date: 20220721
  Serious: Yes (Other)
  Sender: FDA-Public Use
  Company Number: None

PATIENT
  Age: 59 Year
  Sex: Female
  Weight: 83.46 kg

DRUGS (18)
  1. ESTRADIOL TRANSDERMAL SYSTEM [Suspect]
     Active Substance: ESTRADIOL
     Indication: Hormone replacement therapy
     Dosage: 1 PATCH WEEKLY ON THE SKIN
     Route: 058
     Dates: start: 20220304, end: 20220329
  2. ESTRADIOL TRANSDERMAL SYSTEM [Suspect]
     Active Substance: ESTRADIOL
     Indication: Osteoporosis prophylaxis
  3. HYDREA [Concomitant]
     Active Substance: HYDROXYUREA
  4. ZONISAMIDE [Concomitant]
     Active Substance: ZONISAMIDE
  5. LEVOTHYROXINE [Concomitant]
     Active Substance: LEVOTHYROXINE
  6. BUPROPION [Concomitant]
     Active Substance: BUPROPION
  7. ASPIRIN [Concomitant]
     Active Substance: ASPIRIN
  8. HYDROCHLOROTHIAZIDE\LOSARTAN [Concomitant]
     Active Substance: HYDROCHLOROTHIAZIDE\LOSARTAN
  9. Sumatriptan-naproxen [Concomitant]
  10. ZOFRAN [Concomitant]
     Active Substance: ONDANSETRON HYDROCHLORIDE
  11. HYDROXYZINE [Concomitant]
     Active Substance: HYDROXYZINE HYDROCHLORIDE
  12. VITAMIN D NOS [Concomitant]
     Active Substance: VITAMIN D NOS
  13. VITAMINS [Concomitant]
     Active Substance: VITAMINS
  14. VITAMIN B12 [Concomitant]
     Active Substance: CYANOCOBALAMIN
  15. BIOTIN [Concomitant]
     Active Substance: BIOTIN
  16. LORATADINE [Concomitant]
     Active Substance: LORATADINE
  17. ESOMEPRAZOLE [Concomitant]
     Active Substance: ESOMEPRAZOLE
  18. MELATONIN [Concomitant]
     Active Substance: MELATONIN

REACTIONS (3)
  - Application site rash [None]
  - Skin irritation [None]
  - Product substitution issue [None]

NARRATIVE: CASE EVENT DATE: 20220309
